FAERS Safety Report 7811917-X (Version None)
Quarter: 2011Q4

REPORT INFORMATION
  Report Type: 
  Country: None (occurrence: None)
  Receive Date: 20111013
  Receipt Date: 20111008
  Transmission Date: 20120403
  Serious: Yes (Death, Other)
  Sender: FDA-Public Use
  Company Number: PHHY2011TR89131

PATIENT

DRUGS (1)
  1. SANDOSTATIN LAR [Suspect]

REACTIONS (2)
  - ACUTE ABDOMEN [None]
  - ILEUS [None]
